FAERS Safety Report 6823030-9 (Version None)
Quarter: 2010Q3

REPORT INFORMATION
  Report Type: 
  Country: None (occurrence: None)
  Receive Date: 20100708
  Receipt Date: 20100702
  Transmission Date: 20110219
  Serious: Yes (Hospitalization)
  Sender: FDA-Public Use
  Company Number: B0586814A

PATIENT
  Sex: Female
  Weight: 67 kg

DRUGS (2)
  1. LAPATINIB [Suspect]
     Indication: BREAST CANCER
     Route: 048
     Dates: start: 20081225
  2. TRASTUZUMAB [Suspect]
     Indication: BREAST CANCER
     Dosage: 6MGK EVERY 3 WEEKS
     Route: 042
     Dates: start: 20081225

REACTIONS (5)
  - BLISTER [None]
  - CELLULITIS [None]
  - ERYTHEMA [None]
  - FLUSHING [None]
  - RASH [None]
